FAERS Safety Report 6759214-8 (Version None)
Quarter: 2010Q2

REPORT INFORMATION
  Report Type: 
  Country: None (occurrence: None)
  Receive Date: 20100607
  Receipt Date: 20100526
  Transmission Date: 20101027
  Serious: Yes (Other)
  Sender: FDA-Public Use
  Company Number: US-PFIZER INC-2009263455

PATIENT
  Sex: Male
  Weight: 70.748 kg

DRUGS (2)
  1. SUTENT [Suspect]
     Indication: RENAL CELL CARCINOMA
     Dosage: 50 MG, DAILY, CYCLE 4-2
     Route: 048
     Dates: start: 20090826
  2. SUTENT [Suspect]
     Indication: RENAL CANCER STAGE IV
     Dosage: 37.5 MG, 1X/DAY, CYCLE 4-2
     Route: 048

REACTIONS (5)
  - BLOOD THYROID STIMULATING HORMONE INCREASED [None]
  - DYSPNOEA [None]
  - HAEMOPTYSIS [None]
  - HYPERTENSION [None]
  - THYROID DISORDER [None]
